FAERS Safety Report 8249198-8 (Version None)
Quarter: 2012Q2

REPORT INFORMATION
  Report Type: 
  Country: None (occurrence: None)
  Receive Date: 20120402
  Receipt Date: 20120326
  Transmission Date: 20120825
  Serious: Yes (Other)
  Sender: FDA-Public Use
  Company Number: US-BAYER-201038365NA

PATIENT
  Age: 42 Year
  Sex: Female
  Weight: 68.027 kg

DRUGS (4)
  1. YAZ [Suspect]
     Dosage: UNK
     Route: 048
     Dates: start: 20040601
  2. IBUPROFEN [Concomitant]
     Indication: PAIN
     Dosage: 800 MG, UNK
     Dates: start: 20070323
  3. YASMIN [Suspect]
     Indication: MENSTRUAL DISORDER
     Dosage: UNK
     Route: 048
     Dates: start: 20041207, end: 20070601
  4. PROPRANOLOL [Concomitant]
     Indication: PRODUCT USED FOR UNKNOWN INDICATION
     Dosage: 120 MG, UNK
     Dates: start: 20070306

REACTIONS (9)
  - PULMONARY EMBOLISM [None]
  - HEADACHE [None]
  - MONOPLEGIA [None]
  - ARTHRALGIA [None]
  - HYPOAESTHESIA [None]
  - SCAR [None]
  - DIPLOPIA [None]
  - HYPERTENSION [None]
  - WEIGHT INCREASED [None]
